FAERS Safety Report 9198198 (Version 1)
Quarter: 2013Q1

REPORT INFORMATION
  Report Type: Spontaneous
  Country: US (occurrence: US)
  Receive Date: 20130329
  Receipt Date: 20130329
  Transmission Date: 20140127
  Serious: Yes (Hospitalization)
  Sender: FDA-Public Use
  Company Number: US-BIOGENIDEC-2013BI027138

PATIENT
  Age: 42 Year
  Sex: Female

DRUGS (2)
  1. AVONEX [Suspect]
     Indication: MULTIPLE SCLEROSIS
     Route: 030
     Dates: start: 20040109, end: 20120902
  2. AVONEX [Suspect]
     Indication: MULTIPLE SCLEROSIS
     Route: 030
     Dates: start: 20121121

REACTIONS (4)
  - Hypotonia [Not Recovered/Not Resolved]
  - Muscular weakness [Not Recovered/Not Resolved]
  - Muscle spasms [Unknown]
  - Diplopia [Unknown]
